FAERS Safety Report 23229246 (Version 1)
Quarter: 2023Q4

REPORT INFORMATION
  Report Type: Spontaneous
  Country: US (occurrence: US)
  Receive Date: 20231127
  Receipt Date: 20231127
  Transmission Date: 20240110
  Serious: Yes (Other)
  Sender: FDA-Public Use
  Company Number: US-NOVOPROD-1142103

PATIENT
  Age: 29 Year

DRUGS (3)
  1. FIASP [Suspect]
     Active Substance: INSULIN ASPART
     Dosage: USED DOUBLE DOSE
     Route: 058
     Dates: end: 20231115
  2. FIASP [Suspect]
     Active Substance: INSULIN ASPART
     Indication: Type 1 diabetes mellitus
     Dosage: 1 UNIT PER HR. 24:7 VIA PUMP
     Route: 058
     Dates: start: 20231110
  3. FIASP [Suspect]
     Active Substance: INSULIN ASPART
     Dosage: UNK (NEW VIAL)
     Route: 058

REACTIONS (2)
  - Diabetic ketoacidosis [Recovered/Resolved]
  - Liquid product physical issue [Unknown]

NARRATIVE: CASE EVENT DATE: 20231115
